FAERS Safety Report 8386557-7 (Version None)
Quarter: 2012Q2

REPORT INFORMATION
  Report Type: 
  Country: None (occurrence: None)
  Receive Date: 20120525
  Receipt Date: 20110711
  Transmission Date: 20120825
  Serious: No
  Sender: FDA-Public Use
  Company Number: US-GLAXOSMITHKLINE-A0936705A

PATIENT
  Age: 7 Year
  Sex: Male
  Weight: 22.7 kg

DRUGS (4)
  1. VERAMYST [Suspect]
     Indication: RHINITIS ALLERGIC
     Dosage: 1SPR PER DAY
     Route: 045
     Dates: start: 20110501, end: 20110508
  2. ZITHROMAX [Concomitant]
  3. ALBUTEROL [Concomitant]
  4. ZYRTEC [Concomitant]

REACTIONS (1)
  - AGEUSIA [None]
